FAERS Safety Report 17026576 (Version 5)
Quarter: 2021Q1

REPORT INFORMATION
  Report Type: Report from Study
  Country: CO (occurrence: CO)
  Receive Date: 20191113
  Receipt Date: 20210222
  Transmission Date: 20210419
  Serious: Yes (Other)
  Sender: FDA-Public Use
  Company Number: PHHY2019CO216426

PATIENT
  Sex: Female
  Weight: 45 kg

DRUGS (5)
  1. AFINITOR [Suspect]
     Active Substance: EVEROLIMUS
     Dosage: 5 MG, QD
     Route: 048
  2. AFINITOR [Suspect]
     Active Substance: EVEROLIMUS
     Indication: GASTROENTEROPANCREATIC NEUROENDOCRINE TUMOUR DISEASE
     Dosage: 10 MG, QD
     Route: 048
     Dates: start: 20190823
  3. SANDOSTATIN LAR DEPOT [Suspect]
     Active Substance: OCTREOTIDE ACETATE
  4. SANDOSTATIN LAR DEPOT [Suspect]
     Active Substance: OCTREOTIDE ACETATE
  5. SANDOSTATIN LAR DEPOT [Suspect]
     Active Substance: OCTREOTIDE ACETATE
     Indication: GASTROENTEROPANCREATIC NEUROENDOCRINE TUMOUR DISEASE
     Dosage: 30 MG, QMO (AMPOULE)
     Route: 030
     Dates: start: 20180316

REACTIONS (12)
  - Illness [Unknown]
  - Vomiting [Unknown]
  - Oral mucosal blistering [Unknown]
  - Dyspnoea [Unknown]
  - Stomatitis [Unknown]
  - Fluid retention [Unknown]
  - Eating disorder [Unknown]
  - Peripheral swelling [Unknown]
  - Atrioventricular block [Unknown]
  - Movement disorder [Unknown]
  - Pain [Unknown]
  - Cheilitis [Unknown]
